FAERS Safety Report 4661329-5 (Version None)
Quarter: 2005Q2

REPORT INFORMATION
  Report Type: 
  Country: None (occurrence: None)
  Receive Date: 20050513
  Receipt Date: 20050512
  Transmission Date: 20051028
  Serious: Yes (Other)
  Sender: FDA-Public Use
  Company Number: PHNU2005DE01944

PATIENT
  Sex: Male

DRUGS (5)
  1. NEURONTIN [Suspect]
     Dosage: UNKNOWN
     Route: 048
  2. NEPHRAL [Concomitant]
     Dosage: UNKNOWN
  3. DETRUSITOL [Concomitant]
     Dosage: UNKNOWN
  4. MADOPAR [Concomitant]
     Dosage: UNKNOWN
  5. EXELON [Suspect]
     Dosage: 3 MG/DAY
     Route: 048
     Dates: start: 20050101

REACTIONS (1)
  - CIRCULATORY COLLAPSE [None]
